FAERS Safety Report 18665379 (Version 1)
Quarter: 2020Q4

REPORT INFORMATION
  Report Type: Spontaneous
  Country: HR (occurrence: HR)
  Receive Date: 20201225
  Receipt Date: 20201225
  Transmission Date: 20210114
  Serious: Yes (Other)
  Sender: FDA-Public Use
  Company Number: NVSC2020HR332508

PATIENT
  Sex: Female

DRUGS (1)
  1. OLANZAPINE. [Suspect]
     Active Substance: OLANZAPINE
     Indication: PRODUCT USED FOR UNKNOWN INDICATION
     Dosage: UNK (2 BOXES OF OLANZAPINE)
     Route: 048
     Dates: start: 202011, end: 202011

REACTIONS (3)
  - Intentional overdose [Unknown]
  - Blood creatine phosphokinase increased [Unknown]
  - Suicide attempt [Unknown]

NARRATIVE: CASE EVENT DATE: 202011
